APPROVED DRUG PRODUCT: VOYDEYA
Active Ingredient: DANICOPAN
Strength: 100MG
Dosage Form/Route: TABLET;ORAL
Application: N218037 | Product #002
Applicant: ALEXION PHARMACEUTICALS INC
Approved: Mar 29, 2024 | RLD: Yes | RS: Yes | Type: RX

PATENTS:
Patent 9796741 | Expires: Feb 25, 2035
Patent 12076319 | Expires: Aug 2, 2038

EXCLUSIVITY:
Code: NCE | Date: Mar 29, 2029
Code: ODE-476 | Date: Mar 29, 2031